FAERS Safety Report 12728977 (Version 2)
Quarter: 2016Q3

REPORT INFORMATION
  Report Type: Spontaneous
  Country: NO (occurrence: NO)
  Receive Date: 20160909
  Receipt Date: 20160921
  Transmission Date: 20161109
  Serious: Yes (Death, Hospitalization)
  Sender: FDA-Public Use
  Company Number: NO-CELGENEUS-NOR-2016087744

PATIENT
  Age: 73 Year
  Sex: Male
  Weight: 70.2 kg

DRUGS (1)
  1. VIDAZA [Suspect]
     Active Substance: AZACITIDINE
     Indication: MYELODYSPLASTIC SYNDROME
     Route: 058
     Dates: start: 20160104, end: 20160107

REACTIONS (2)
  - Multiple organ dysfunction syndrome [Fatal]
  - Respiratory failure [Fatal]

NARRATIVE: CASE EVENT DATE: 2016
